FAERS Safety Report 14453998 (Version 1)
Quarter: 2018Q1

REPORT INFORMATION
  Report Type: Spontaneous
  Country: US (occurrence: US)
  Receive Date: 20180129
  Receipt Date: 20180129
  Transmission Date: 20180509
  Serious: No
  Sender: FDA-Public Use
  Company Number: US-ALLERGAN-1701699US

PATIENT
  Age: 40 Year
  Sex: Female

DRUGS (1)
  1. TAZORAC [Suspect]
     Active Substance: TAZAROTENE
     Indication: ACNE
     Dosage: UNK, PRN
     Route: 061
     Dates: start: 201608

REACTIONS (7)
  - Burning sensation [Recovered/Resolved]
  - Dry skin [Recovered/Resolved]
  - Erythema [Recovered/Resolved]
  - Paraesthesia [Recovered/Resolved]
  - Pruritus [Recovered/Resolved]
  - Rash macular [Recovered/Resolved]
  - Feeling hot [Recovered/Resolved]

NARRATIVE: CASE EVENT DATE: 201608
